FAERS Safety Report 23946160 (Version 1)
Quarter: 2024Q2

REPORT INFORMATION
  Report Type: Spontaneous
  Country: US (occurrence: None)
  Receive Date: 20240606
  Receipt Date: 20240606
  Transmission Date: 20240716
  Serious: Yes (Other)
  Sender: FDA-Public Use
  Company Number: US-ROCHE-3574354

PATIENT
  Sex: Male
  Weight: 63.106 kg

DRUGS (4)
  1. ALECENSA [Suspect]
     Active Substance: ALECTINIB HYDROCHLORIDE
     Indication: Non-small cell lung cancer
     Dosage: TAKES 8 CAPSULES DAILY
     Route: 048
     Dates: start: 202303
  2. PANTOPRAZOLE [Concomitant]
     Active Substance: PANTOPRAZOLE
  3. METOPROLOL [Concomitant]
     Active Substance: METOPROLOL
  4. VITAMIN C [Concomitant]
     Active Substance: ASCORBIC ACID

REACTIONS (2)
  - Fatigue [Not Recovered/Not Resolved]
  - Brain cancer metastatic [Unknown]
